FAERS Safety Report 9294809 (Version 7)
Quarter: 2014Q1

REPORT INFORMATION
  Report Type: Report from Study
  Country: JP (occurrence: JP)
  Receive Date: 20130517
  Receipt Date: 20140114
  Transmission Date: 20141002
  Serious: Yes (Hospitalization)
  Sender: FDA-Public Use
  Company Number: JP-PFIZER INC-2013147042

PATIENT
  Age: 69 Year
  Sex: Female
  Weight: 43.1 kg

DRUGS (3)
  1. XALKORI [Suspect]
     Indication: NON-SMALL CELL LUNG CANCER
     Dosage: 250 MG, 2X/DAY
     Route: 048
     Dates: start: 20130208, end: 20130218
  2. PRIMPERAN [Suspect]
     Indication: NAUSEA
     Dosage: 5 MG, AS NEEDED
     Route: 048
     Dates: start: 20130208, end: 20130218
  3. EC DOPARL [Concomitant]
     Dosage: 1.5 DF, 3X/DAY
     Route: 048

REACTIONS (1)
  - Urinary retention [Recovering/Resolving]
